FAERS Safety Report 5509594-6 (Version None)
Quarter: 2007Q4

REPORT INFORMATION
  Report Type: 
  Country: None (occurrence: None)
  Receive Date: 20071029
  Receipt Date: 20070709
  Transmission Date: 20080405
  Serious: Yes (Other)
  Sender: FDA-Public Use
  Company Number: USEN-74XNT2

PATIENT

DRUGS (1)
  1. DURAPREP [Suspect]
     Indication: PREOPERATIVE CARE
     Dosage: TOPICAL, SINGLE APPLICATION
     Route: 061

REACTIONS (1)
  - BURNS FIRST DEGREE [None]
